FAERS Safety Report 14288364 (Version 1)
Quarter: 2017Q4

REPORT INFORMATION
  Report Type: Spontaneous
  Country: US (occurrence: US)
  Receive Date: 20171215
  Receipt Date: 20171215
  Transmission Date: 20180321
  Serious: No
  Sender: FDA-Public Use
  Company Number: US-TEVA-815094ACC

PATIENT
  Age: 52 Year
  Sex: Female
  Weight: 109.75 kg

DRUGS (6)
  1. PANTOPRAZOLE [Concomitant]
     Active Substance: PANTOPRAZOLE
     Dates: start: 2012
  2. SYMBICORT [Concomitant]
     Active Substance: BUDESONIDE\FORMOTEROL FUMARATE DIHYDRATE
     Dates: start: 2012
  3. LOSARTAN AND HYDROCHLOROTHIAZIDE [Concomitant]
     Active Substance: HYDROCHLOROTHIAZIDE\LOSARTAN POTASSIUM
     Dates: start: 2009
  4. VITAMIN D3 [Concomitant]
     Active Substance: CHOLECALCIFEROL
     Dates: start: 2012
  5. MUCUS ER [Suspect]
     Active Substance: GUAIFENESIN
     Indication: COUGH
     Dosage: 2400 MILLIGRAM DAILY;
     Route: 048
     Dates: start: 20171002, end: 20171004
  6. CLARITIN [Concomitant]
     Active Substance: LORATADINE
     Dates: start: 2012

REACTIONS (1)
  - Urine odour abnormal [Recovering/Resolving]

NARRATIVE: CASE EVENT DATE: 20171002
